FAERS Safety Report 15427199 (Version 1)
Quarter: 2018Q3

REPORT INFORMATION
  Report Type: Other
  Country: CN (occurrence: CN)
  Receive Date: 20180925
  Receipt Date: 20180925
  Transmission Date: 20181010
  Serious: Yes (Hospitalization, Other)
  Sender: FDA-Public Use
  Company Number: CN-ACTELION-A-CH2018-178907

PATIENT
  Age: 40 Year
  Sex: Female

DRUGS (1)
  1. BOSENTAN. [Suspect]
     Active Substance: BOSENTAN
     Indication: PULMONARY HYPERTENSION
     Route: 048

REACTIONS (9)
  - Chest discomfort [Recovering/Resolving]
  - Drug-induced liver injury [Recovering/Resolving]
  - Hypotension [Recovering/Resolving]
  - Asphyxia [Recovering/Resolving]
  - Respiratory failure [Recovering/Resolving]
  - Alanine aminotransferase increased [Recovering/Resolving]
  - Aspartate aminotransferase increased [Recovering/Resolving]
  - Blood bilirubin increased [Recovering/Resolving]
  - Cardiac disorder [Recovering/Resolving]
